FAERS Safety Report 17557433 (Version 1)
Quarter: 2020Q1

REPORT INFORMATION
  Report Type: Spontaneous
  Country: DE (occurrence: DE)
  Receive Date: 20200318
  Receipt Date: 20200318
  Transmission Date: 20200409
  Serious: Yes (Hospitalization)
  Sender: FDA-Public Use
  Company Number: DE-TEVA-2020-DE-1202554

PATIENT
  Age: 62 Year
  Sex: Female

DRUGS (8)
  1. OPIPRAMOL [Suspect]
     Active Substance: OPIPRAMOL
     Dosage: 15 MILLIGRAM DAILY; 15 MG, 0-0-1-0
  2. CITALOPRAM [Suspect]
     Active Substance: CITALOPRAM HYDROBROMIDE
     Dosage: 40 MILLIGRAM DAILY; 40 MG, 0.5-0-0-0
  3. ACETYLSALICYLS?URE [Concomitant]
     Active Substance: ASPIRIN
     Dosage: 100 MILLIGRAM DAILY; 100 MG, 0-1-0-0
  4. LORAZEPAM. [Suspect]
     Active Substance: LORAZEPAM
     Dosage: 3 MILLIGRAM DAILY; 1 MG, 1-1-1-0
  5. IBUPROFEN. [Suspect]
     Active Substance: IBUPROFEN
     Dosage: REQUIREMENT
  6. TRAMADOL. [Suspect]
     Active Substance: TRAMADOL
     Dosage: REQUIREMENT
  7. OLANZAPIN [Suspect]
     Active Substance: OLANZAPINE
     Dosage: 5 MILLIGRAM DAILY; 5 MG, 0-0-1-0
  8. RAMIPRIL. [Concomitant]
     Active Substance: RAMIPRIL
     Dosage: 5 MG, 1-0-0-0

REACTIONS (8)
  - Confusional state [Unknown]
  - Fall [Unknown]
  - Product prescribing error [Unknown]
  - General physical health deterioration [Unknown]
  - Accidental overdose [Unknown]
  - Delirium [Unknown]
  - Musculoskeletal pain [Unknown]
  - Skin irritation [Unknown]
